FAERS Safety Report 12629800 (Version 2)
Quarter: 2016Q3

REPORT INFORMATION
  Report Type: Spontaneous
  Country: FR (occurrence: FR)
  Receive Date: 20160808
  Receipt Date: 20160809
  Transmission Date: 20161109
  Serious: Yes (Other)
  Sender: FDA-Public Use
  Company Number: FR-PFIZER INC-2016371590

PATIENT
  Age: 33 Year
  Sex: Female

DRUGS (11)
  1. FOLIC ACID. [Concomitant]
     Active Substance: FOLIC ACID
     Dosage: 5 MG, DAILY
  2. LANSOPRAZOLE MYLAN [Suspect]
     Active Substance: LANSOPRAZOLE
     Dosage: 15 MG, UNK
     Route: 048
     Dates: start: 20160726, end: 20160726
  3. CALCIDOSE VITAMINE D [Suspect]
     Active Substance: CALCIUM\CHOLECALCIFEROL
     Dosage: UNK
     Route: 048
     Dates: start: 20160726, end: 20160726
  4. CLAIRYG [Concomitant]
     Active Substance: HUMAN IMMUNOGLOBULIN G
     Indication: GUILLAIN-BARRE SYNDROME
     Dosage: 0.4 G/KG, DAILY
     Route: 042
     Dates: start: 20160718
  5. MAGNEVIE B6 [Concomitant]
     Dosage: 2 TABLETS, 3X/DAY
  6. LYRICA [Suspect]
     Active Substance: PREGABALIN
     Dosage: 50 MG, UNK
     Route: 048
     Dates: start: 20160726, end: 20160726
  7. LAROXYL [Suspect]
     Active Substance: AMITRIPTYLINE
     Dosage: 50 DROPS
     Route: 048
     Dates: start: 20160726, end: 20160726
  8. IMUREL [Suspect]
     Active Substance: AZATHIOPRINE SODIUM
     Dosage: UNK
     Route: 048
     Dates: start: 20160726, end: 20160726
  9. MYTELASE [Suspect]
     Active Substance: AMBENONIUM CHLORIDE
     Dosage: UNK
     Route: 048
     Dates: start: 20160726, end: 20160726
  10. LOVENOX [Concomitant]
     Active Substance: ENOXAPARIN SODIUM
     Dosage: 0.4 ML, 1X/DAY (IN THE EVENING)
     Route: 058
  11. ESCITALOPRAM ARROW [Suspect]
     Active Substance: ESCITALOPRAM OXALATE
     Dosage: 10 MG, UNK
     Route: 048
     Dates: start: 20160726, end: 20160726

REACTIONS (6)
  - Wrong drug administered [Unknown]
  - Vertigo [Recovered/Resolved]
  - Nausea [Recovered/Resolved]
  - Cough [Unknown]
  - Nervous system disorder [Unknown]
  - Respiratory distress [Recovered/Resolved]

NARRATIVE: CASE EVENT DATE: 20160726
